FAERS Safety Report 19814122 (Version 1)
Quarter: 2021Q3

REPORT INFORMATION
  Report Type: Spontaneous
  Country: US (occurrence: US)
  Receive Date: 20210909
  Receipt Date: 20210909
  Transmission Date: 20211014
  Serious: No
  Sender: FDA-Public Use
  Company Number: US-GLAXOSMITHKLINE-US2021188656

PATIENT
  Age: 51 Year
  Sex: Female

DRUGS (2)
  1. VENTOLIN HFA [Suspect]
     Active Substance: ALBUTEROL SULFATE
     Indication: ASTHMA
     Dosage: 1 PUFF(S), Z  EVERY 4 HOURS AS NEEDED
     Route: 055
     Dates: start: 202012
  2. ADVAIR DISKUS [Suspect]
     Active Substance: FLUTICASONE PROPIONATE\SALMETEROL XINAFOATE
     Indication: ASTHMA
     Dosage: 1 PUFF(S), BID 250/50MCG
     Route: 055
     Dates: start: 202012

REACTIONS (1)
  - Gastrooesophageal reflux disease [Recovered/Resolved with Sequelae]

NARRATIVE: CASE EVENT DATE: 20210827
